FAERS Safety Report 15335519 (Version 1)
Quarter: 2018Q3

REPORT INFORMATION
  Report Type: Spontaneous
  Country: US (occurrence: US)
  Receive Date: 20180830
  Receipt Date: 20180830
  Transmission Date: 20181010
  Serious: No
  Sender: FDA-Public Use
  Company Number: US-TEVA-2018-US-948037

PATIENT
  Sex: Male

DRUGS (2)
  1. BACLOFEN. [Suspect]
     Active Substance: BACLOFEN
  2. LISINOPRIL. [Concomitant]
     Active Substance: LISINOPRIL
     Indication: HYPERTENSION
     Dosage: 40 MILLIGRAM DAILY; CALLER SAYS THAT THEY PUT HIM ON THIS WHEN HE WENT TO THE EMERGENCY ROOM.
     Route: 048
     Dates: start: 201611

REACTIONS (1)
  - Drug ineffective [Unknown]
